FAERS Safety Report 24867094 (Version 1)
Quarter: 2025Q1

REPORT INFORMATION
  Report Type: Spontaneous
  Country: US (occurrence: US)
  Receive Date: 20250121
  Receipt Date: 20250121
  Transmission Date: 20250408
  Serious: No
  Sender: SUNOVION
  Company Number: US-SMPA-2025SPA000153AA

PATIENT

DRUGS (8)
  1. GEMTESA [Suspect]
     Active Substance: VIBEGRON
     Indication: Urinary incontinence
     Dosage: 75 MG, QD
     Route: 048
     Dates: start: 202410
  2. SYNTHROID [Concomitant]
     Active Substance: LEVOTHYROXINE SODIUM
     Dosage: 15 MG, QOD
  3. DULOXETINE [Concomitant]
     Active Substance: DULOXETINE
     Dosage: 30 MG, QD
  4. IMVEXXY [Concomitant]
     Active Substance: ESTRADIOL
     Dosage: UNK, BIW
  5. CALCIUM CITRATE [Concomitant]
     Active Substance: CALCIUM CITRATE
     Indication: Osteoporosis
     Dosage: 60 MG, BID
  6. DILTIAZEM [Concomitant]
     Active Substance: DILTIAZEM
     Indication: Postural orthostatic tachycardia syndrome
     Dosage: 120 MG, QD
  7. Miramax [Concomitant]
  8. CALCIUM [Concomitant]
     Active Substance: CALCIUM

REACTIONS (6)
  - Flatulence [Unknown]
  - Weight increased [Unknown]
  - Limb discomfort [Unknown]
  - Abdominal distension [Unknown]
  - Gastrointestinal sounds abnormal [Unknown]
  - Constipation [Unknown]

NARRATIVE: CASE EVENT DATE: 20241201
